FAERS Safety Report 10026134 (Version 2)
Quarter: 2014Q1

REPORT INFORMATION
  Report Type: Spontaneous
  Country: US (occurrence: US)
  Receive Date: 20140320
  Receipt Date: 20140320
  Transmission Date: 20141002
  Serious: No
  Sender: FDA-Public Use
  Company Number: US-ALLERGAN-1403505US

PATIENT
  Age: 59 Year
  Sex: Female

DRUGS (3)
  1. REFRESH LIQUIGEL OPHTHALMIC [Suspect]
     Indication: DRY EYE
     Dosage: 2 GTT, TID
     Route: 047
     Dates: start: 20140218, end: 20140220
  2. LUMIGAN 0.01% [Suspect]
     Indication: GLAUCOMA
     Dosage: 2 GTT, QHS
     Route: 047
  3. BETAMOL [Concomitant]
     Indication: GLAUCOMA

REACTIONS (4)
  - Blister [Recovering/Resolving]
  - Eye swelling [Recovering/Resolving]
  - Eye pruritus [Recovering/Resolving]
  - Eye irritation [Recovering/Resolving]
